FAERS Safety Report 23622768 (Version 5)
Quarter: 2025Q3

REPORT INFORMATION
  Report Type: Report from Study
  Country: US (occurrence: US)
  Receive Date: 20240312
  Receipt Date: 20250923
  Transmission Date: 20251020
  Serious: Yes (Other)
  Sender: AGIOS PHARMACEUTICALS
  Company Number: US-AGIOS-2402US03673

PATIENT
  Sex: Female

DRUGS (1)
  1. MITAPIVAT [Suspect]
     Active Substance: MITAPIVAT
     Indication: Haemolytic anaemia enzyme specific
     Route: 048
     Dates: start: 20221215

REACTIONS (8)
  - Liver disorder [Unknown]
  - Joint stiffness [Unknown]
  - Musculoskeletal stiffness [Unknown]
  - Haemoglobin decreased [Unknown]
  - Blood oestrogen decreased [Unknown]
  - Arthralgia [Unknown]
  - Product dose omission issue [Unknown]
  - Blood bilirubin abnormal [Unknown]
